FAERS Safety Report 9712346 (Version 1)
Quarter: 2013Q4

REPORT INFORMATION
  Report Type: Spontaneous
  Country: US (occurrence: None)
  Receive Date: 20131122
  Receipt Date: 20131122
  Transmission Date: 20140711
  Serious: Yes (Other)
  Sender: FDA-Public Use
  Company Number: 2013110037

PATIENT
  Age: 78 Year
  Sex: Female
  Weight: 69.4 kg

DRUGS (6)
  1. DYMISTA [Suspect]
     Indication: UPPER-AIRWAY COUGH SYNDROME
     Dosage: 4 DOSAGE FORMS (2 DOSAGE FORMS, 2 IN 1 D), IN
     Route: 055
     Dates: start: 20131028, end: 20131109
  2. FLU SHOT [Suspect]
     Route: 051
     Dates: start: 201311, end: 201311
  3. LISINOPRIL (LISINOPRIL) [Concomitant]
  4. METOPROLOL (METOPROLOL) [Concomitant]
  5. SIMVASTATIN (SIMVASTATIN) [Concomitant]
  6. HYDROCHLOROTHIAZIDE (HYDROCHLOROTHIAZIDE) [Concomitant]

REACTIONS (4)
  - Blood pressure increased [None]
  - Dizziness [None]
  - Epistaxis [None]
  - Nausea [None]
